FAERS Safety Report 7134094-X (Version None)
Quarter: 2010Q4

REPORT INFORMATION
  Report Type: 
  Country: None (occurrence: None)
  Receive Date: 20101203
  Receipt Date: 20101124
  Transmission Date: 20110411
  Serious: Yes (Other)
  Sender: FDA-Public Use
  Company Number: CA-JNJFOC-20101200517

PATIENT
  Sex: Male
  Weight: 81.3 kg

DRUGS (6)
  1. REMICADE [Suspect]
     Indication: CROHN'S DISEASE
     Dosage: 2ND INFUSION
     Route: 042
  2. REMICADE [Suspect]
     Dosage: 1ST INFUSION
     Route: 042
  3. MESALAMINE [Concomitant]
  4. IMURAN [Concomitant]
  5. BENADRYL [Concomitant]
     Indication: PREMEDICATION
  6. TYLENOL-500 [Concomitant]
     Indication: PREMEDICATION

REACTIONS (7)
  - DYSPHAGIA [None]
  - FEELING OF BODY TEMPERATURE CHANGE [None]
  - INFUSION RELATED REACTION [None]
  - MIGRAINE [None]
  - SENSATION OF FOREIGN BODY [None]
  - STRESS [None]
  - THROAT IRRITATION [None]
